FAERS Safety Report 14881860 (Version 2)
Quarter: 2018Q2

REPORT INFORMATION
  Report Type: Spontaneous
  Country: RO (occurrence: RO)
  Receive Date: 20180511
  Receipt Date: 20180524
  Transmission Date: 20180711
  Serious: Yes (Death, Hospitalization)
  Sender: FDA-Public Use
  Company Number: RO-PFIZER INC-2018191637

PATIENT
  Age: 62 Year
  Sex: Female
  Weight: 48 kg

DRUGS (4)
  1. SUTENT [Suspect]
     Active Substance: SUNITINIB MALATE
     Indication: RENAL CANCER METASTATIC
     Dosage: 50 MG, UNK
     Dates: start: 201710
  2. OXICODONA [Concomitant]
     Active Substance: OXYCODONE
     Dosage: 60 MG, 2X/DAY (1 IN THE MORNING AND 1 IN THE EVENING)
  3. SEVREDOL [Concomitant]
     Active Substance: MORPHINE
     Dosage: 20 MG, 2X/DAY (1 IN THE MORNING AND 1 IN THE EVENING)
  4. CARBAMAZEPINE. [Concomitant]
     Active Substance: CARBAMAZEPINE
     Dosage: 2 DF, 1X/DAY

REACTIONS (1)
  - Neoplasm progression [Fatal]
